FAERS Safety Report 8162453-5 (Version None)
Quarter: 2012Q1

REPORT INFORMATION
  Report Type: 
  Country: None (occurrence: None)
  Receive Date: 20120224
  Receipt Date: 20120217
  Transmission Date: 20120608
  Serious: Yes (Disabling)
  Sender: FDA-Public Use
  Company Number: IT-TEVA-323668ISR

PATIENT
  Sex: Female

DRUGS (2)
  1. METFORMINA CLORIDRATO [Suspect]
  2. FUROSEMIDE [Suspect]

REACTIONS (2)
  - APHASIA [None]
  - ISCHAEMIC STROKE [None]
